FAERS Safety Report 25483081 (Version 1)
Quarter: 2025Q2

REPORT INFORMATION
  Report Type: Spontaneous
  Country: DE (occurrence: DE)
  Receive Date: 20250626
  Receipt Date: 20250626
  Transmission Date: 20250717
  Serious: Yes (Other)
  Sender: AMGEN
  Company Number: DE-AMGEN-DEUSP2025121101

PATIENT
  Sex: Female

DRUGS (1)
  1. XGEVA [Suspect]
     Active Substance: DENOSUMAB
     Indication: Breast cancer
     Route: 065
     Dates: start: 2023

REACTIONS (2)
  - Metastases to bone [Unknown]
  - Off label use [Unknown]

NARRATIVE: CASE EVENT DATE: 20230101
